FAERS Safety Report 24822908 (Version 1)
Quarter: 2025Q1

REPORT INFORMATION
  Report Type: Spontaneous
  Country: GB (occurrence: GB)
  Receive Date: 20250109
  Receipt Date: 20250109
  Transmission Date: 20250408
  Serious: Yes (Other)
  Sender: CIPLA
  Company Number: GB-MHRA-MED-202412270002277870-MSGPY

PATIENT

DRUGS (2)
  1. TADALAFIL [Suspect]
     Active Substance: TADALAFIL
     Indication: Adverse drug reaction
     Route: 065
     Dates: end: 20241227
  2. TADALAFIL [Suspect]
     Active Substance: TADALAFIL
     Indication: Erectile dysfunction

REACTIONS (2)
  - Ocular hypertension [Recovered/Resolved with Sequelae]
  - Lenticular pigmentation [Not Recovered/Not Resolved]

NARRATIVE: CASE EVENT DATE: 20241215
